FAERS Safety Report 16116053 (Version 1)
Quarter: 2019Q1

REPORT INFORMATION
  Report Type: Spontaneous
  Country: FR (occurrence: FR)
  Receive Date: 20190326
  Receipt Date: 20190326
  Transmission Date: 20190418
  Serious: Yes (Hospitalization)
  Sender: FDA-Public Use
  Company Number: FR-TEVA-2019-FR-1030092

PATIENT
  Age: 54 Year
  Sex: Female
  Weight: 56 kg

DRUGS (16)
  1. NUTRYELT, SOLUTION ? DILUER POUR PERFUSION [Concomitant]
  2. LOVENOX [Suspect]
     Active Substance: ENOXAPARIN SODIUM
     Indication: THROMBOSIS PROPHYLAXIS
     Dosage: .4 ML DAILY;
     Route: 058
  3. ACUPAN [Suspect]
     Active Substance: NEFOPAM HYDROCHLORIDE
     Indication: PAIN
     Route: 042
     Dates: start: 20170127
  4. OXYNORM [Suspect]
     Active Substance: OXYCODONE HYDROCHLORIDE
     Indication: PAIN
     Route: 048
     Dates: start: 20170127
  5. PHOCYTAN, SOLUTION ? DILUER POUR PERFUSION [Concomitant]
  6. CERNEVIT [Concomitant]
     Active Substance: VITAMINS
  7. PANTOPRAZOLE [Suspect]
     Active Substance: PANTOPRAZOLE
     Indication: GASTROOESOPHAGEAL REFLUX DISEASE
     Dosage: 40 MILLIGRAM DAILY;
     Route: 048
  8. VENLAFAXINE [Suspect]
     Active Substance: VENLAFAXINE HYDROCHLORIDE
     Indication: MAJOR DEPRESSION
     Dosage: 37.5 MG IN THE MORNING AND 75 MG IN THE EVENING
     Route: 048
  9. CUBICIN [Suspect]
     Active Substance: DAPTOMYCIN
     Indication: BACTERAEMIA
     Dosage: 1 DOSAGE FORMS DAILY;
     Route: 042
     Dates: start: 20170131, end: 201702
  10. STILNOX 10 MG, COMPRIM? PELLICUL? S?CABLE [Suspect]
     Active Substance: ZOLPIDEM TARTRATE
     Indication: INSOMNIA
     Dosage: 10 MILLIGRAM DAILY;
     Route: 048
  11. MABELIO [Suspect]
     Active Substance: CEFTOBIPROLE
     Indication: BACTERAEMIA
     Route: 042
     Dates: start: 20170127, end: 20170130
  12. AUGMENTIN [Suspect]
     Active Substance: AMOXICILLIN\CLAVULANATE POTASSIUM
     Indication: BACTERAEMIA
     Route: 042
     Dates: start: 20170131, end: 201702
  13. TRAMADOL BASE [Suspect]
     Active Substance: TRAMADOL
     Indication: PAIN
     Dosage: 200 MILLIGRAM DAILY;
     Route: 048
  14. PARACETAMOL [Suspect]
     Active Substance: ACETAMINOPHEN
     Indication: PAIN
     Route: 048
  15. AMIKACINE MYLAN [Suspect]
     Active Substance: AMIKACIN
     Indication: BACTERAEMIA
     Route: 042
     Dates: start: 20170127, end: 20170130
  16. OLIMEL E [Concomitant]
     Active Substance: AMINO ACIDS\DEXTROSE\ELECTROLYTES NOS\SOYBEAN OIL

REACTIONS (1)
  - Leukopenia [Recovered/Resolved]

NARRATIVE: CASE EVENT DATE: 20170214
